FAERS Safety Report 7216670-9 (Version None)
Quarter: 2011Q1

REPORT INFORMATION
  Report Type: 
  Country: None (occurrence: None)
  Receive Date: 20110110
  Receipt Date: 20101231
  Transmission Date: 20110831
  Serious: No
  Sender: FDA-Public Use
  Company Number: US-BIOGENIDEC-2011BI000401

PATIENT
  Age: 26 Year
  Sex: Male

DRUGS (2)
  1. TYSABRI [Suspect]
     Indication: MULTIPLE SCLEROSIS
     Route: 042
     Dates: start: 20091001
  2. AMANTADINE [Concomitant]
     Indication: ASTHENIA
     Route: 048

REACTIONS (4)
  - DIZZINESS [None]
  - ASTHENIA [None]
  - NAUSEA [None]
  - HEADACHE [None]
